FAERS Safety Report 21629196 (Version 2)
Quarter: 2022Q4

REPORT INFORMATION
  Report Type: Spontaneous
  Country: AT (occurrence: AT)
  Receive Date: 20221122
  Receipt Date: 20221128
  Transmission Date: 20230113
  Serious: Yes (Life-Threatening, Other)
  Sender: FDA-Public Use
  Company Number: AT-PFIZER INC-202201314327

PATIENT
  Age: 58 Year
  Sex: Male
  Weight: 73 kg

DRUGS (7)
  1. DOXORUBICIN HYDROCHLORIDE [Suspect]
     Active Substance: DOXORUBICIN HYDROCHLORIDE
     Indication: Diffuse large B-cell lymphoma
     Dosage: 6 CYCLES
     Dates: start: 202202, end: 202208
  2. RITUXIMAB [Suspect]
     Active Substance: RITUXIMAB
     Indication: Diffuse large B-cell lymphoma
     Dosage: 6 CYCLES
     Dates: start: 202202, end: 202208
  3. VINCRISTINE SULFATE [Suspect]
     Active Substance: VINCRISTINE SULFATE
     Indication: Diffuse large B-cell lymphoma
     Dosage: 6 CYCLES
     Dates: start: 202202, end: 202208
  4. CYCLOPHOSPHAMIDE [Suspect]
     Active Substance: CYCLOPHOSPHAMIDE
     Indication: Chemotherapy
     Dosage: 6 CYCLES
     Dates: start: 202202, end: 202208
  5. CYCLOPHOSPHAMIDE [Suspect]
     Active Substance: CYCLOPHOSPHAMIDE
     Indication: Diffuse large B-cell lymphoma
  6. PREDNISONE [Suspect]
     Active Substance: PREDNISONE
     Indication: Chemotherapy
     Dosage: 6 CYCLES
     Dates: start: 202202, end: 202208
  7. PREDNISONE [Suspect]
     Active Substance: PREDNISONE
     Indication: Diffuse large B-cell lymphoma

REACTIONS (1)
  - Pulmonary embolism [Recovering/Resolving]

NARRATIVE: CASE EVENT DATE: 20220203
